FAERS Safety Report 19454380 (Version 2)
Quarter: 2021Q2

REPORT INFORMATION
  Report Type: Spontaneous
  Country: US (occurrence: US)
  Receive Date: 20210623
  Receipt Date: 20210630
  Transmission Date: 20210717
  Serious: No
  Sender: FDA-Public Use
  Company Number: US-BIOGEN-2021BI01022351

PATIENT
  Age: 30 Year
  Sex: Female
  Weight: 65.7 kg

DRUGS (1)
  1. TYSABRI [Suspect]
     Active Substance: NATALIZUMAB
     Indication: MULTIPLE SCLEROSIS
     Dosage: INFUSED OVER 1 HOUR
     Route: 042
     Dates: start: 20210423, end: 20210423

REACTIONS (4)
  - Oropharyngeal spasm [Not Recovered/Not Resolved]
  - Dyspnoea [Recovered/Resolved]
  - Hypersensitivity [Unknown]
  - Chest pain [Recovered/Resolved]

NARRATIVE: CASE EVENT DATE: 202104
